FAERS Safety Report 13776162 (Version 5)
Quarter: 2017Q4

REPORT INFORMATION
  Report Type: Report from Study
  Country: CA (occurrence: CA)
  Receive Date: 20170721
  Receipt Date: 20171114
  Transmission Date: 20180320
  Serious: Yes (Other)
  Sender: FDA-Public Use
  Company Number: CA-GLAXOSMITHKLINE-CA2017GSK113001

PATIENT
  Sex: Male

DRUGS (2)
  1. MEPOLIZUMAB [Suspect]
     Active Substance: MEPOLIZUMAB
     Dosage: 100 MG, Z
     Route: 042
  2. MEPOLIZUMAB [Suspect]
     Active Substance: MEPOLIZUMAB
     Indication: ASTHMA
     Dosage: 100 MG, Z
     Route: 042
     Dates: start: 20170621

REACTIONS (7)
  - Osteomyelitis [Unknown]
  - General physical health deterioration [Unknown]
  - Influenza [Unknown]
  - Dyspnoea [Unknown]
  - Nasopharyngitis [Recovered/Resolved]
  - Pain in jaw [Recovering/Resolving]
  - Parosmia [Unknown]
